FAERS Safety Report 19661647 (Version 2)
Quarter: 2021Q3

REPORT INFORMATION
  Report Type: Spontaneous
  Country: AT (occurrence: AT)
  Receive Date: 20210805
  Receipt Date: 20210811
  Transmission Date: 20211014
  Serious: Yes (Other)
  Sender: FDA-Public Use
  Company Number: AT-ASTRAZENECA-2021A653992

PATIENT
  Sex: Female

DRUGS (4)
  1. OLUMIANT [Suspect]
     Active Substance: BARICITINIB
     Indication: RHEUMATOID ARTHRITIS
     Dosage: UNK UNK, UNKNOWN
     Route: 065
     Dates: start: 202001
  2. OLUMIANT [Suspect]
     Active Substance: BARICITINIB
     Indication: CENTRAL NERVOUS SYSTEM LUPUS
     Dosage: UNK UNK, UNKNOWN
     Route: 065
     Dates: start: 202001
  3. PANTOLOC [Concomitant]
     Active Substance: PANTOPRAZOLE SODIUM
     Indication: PRODUCT USED FOR UNKNOWN INDICATION
     Dosage: UNK, UNKNOWN
     Route: 065
  4. NEXIUM [Suspect]
     Active Substance: ESOMEPRAZOLE MAGNESIUM
     Indication: PRODUCT USED FOR UNKNOWN INDICATION
     Dosage: UNK, UNKNOWN
     Route: 042

REACTIONS (3)
  - Suicidal ideation [Unknown]
  - Anxiety [Unknown]
  - Dizziness [Unknown]
